FAERS Safety Report 19172794 (Version 1)
Quarter: 2021Q2

REPORT INFORMATION
  Report Type: Spontaneous
  Country: CA (occurrence: CA)
  Receive Date: 20210423
  Receipt Date: 20210423
  Transmission Date: 20210717
  Serious: Yes (Other)
  Sender: FDA-Public Use
  Company Number: CA-BIOVITRUM-2021CA3781

PATIENT
  Age: 10 Year
  Sex: Male

DRUGS (2)
  1. ANAKINRA [Suspect]
     Active Substance: ANAKINRA
     Indication: COVID-19
  2. ANAKINRA [Suspect]
     Active Substance: ANAKINRA
     Indication: MULTISYSTEM INFLAMMATORY SYNDROME IN CHILDREN

REACTIONS (3)
  - Off label use [Unknown]
  - Pericardial effusion [Not Recovered/Not Resolved]
  - Thrombocytosis [Not Recovered/Not Resolved]
